FAERS Safety Report 13129478 (Version 1)
Quarter: 2017Q1

REPORT INFORMATION
  Report Type: Spontaneous
  Country: US (occurrence: US)
  Receive Date: 20170119
  Receipt Date: 20170119
  Transmission Date: 20170428
  Serious: No
  Sender: FDA-Public Use
  Company Number: PHEH2017US001741

PATIENT

DRUGS (1)
  1. ZOMETA [Suspect]
     Active Substance: ZOLEDRONIC ACID
     Indication: OSTEOPOROSIS
     Dosage: EVERY YEAR IN JANUARY
     Route: 065

REACTIONS (2)
  - Osteopenia [Unknown]
  - Product use issue [Unknown]

NARRATIVE: CASE EVENT DATE: 201604
